FAERS Safety Report 6146377-0 (Version None)
Quarter: 2009Q2

REPORT INFORMATION
  Report Type: 
  Country: None (occurrence: None)
  Receive Date: 20090403
  Receipt Date: 20090403
  Transmission Date: 20091009
  Serious: Yes (Other)
  Sender: FDA-Public Use
  Company Number: None

PATIENT
  Sex: Female
  Weight: 48.5349 kg

DRUGS (5)
  1. CYMBALTA [Suspect]
     Indication: NEUROPATHY PERIPHERAL
     Dosage: 30 MG. 3XDAY ORAL INCREASED TO
     Dates: start: 20070601, end: 20070801
  2. MORPHINE [Concomitant]
  3. TOPAMAX [Concomitant]
  4. AMITRIPTYLINE HCL [Concomitant]
  5. VYTORIN [Concomitant]

REACTIONS (5)
  - ANOREXIA [None]
  - DRUG WITHDRAWAL SYNDROME [None]
  - HEADACHE [None]
  - HYPOGLYCAEMIA [None]
  - VOMITING [None]
